FAERS Safety Report 25522423 (Version 1)
Quarter: 2025Q3

REPORT INFORMATION
  Report Type: Spontaneous
  Country: EU (occurrence: EU)
  Receive Date: 20250707
  Receipt Date: 20250707
  Transmission Date: 20251020
  Serious: No
  Sender: ALKEM
  Company Number: EU-ALKEM LABORATORIES LIMITED-FR-ALKEM-2024-15709

PATIENT
  Age: 52 Year
  Sex: Female

DRUGS (2)
  1. DRONABINOL [Suspect]
     Active Substance: DRONABINOL
     Indication: Neuralgia
     Dosage: 2.5 MILLIGRAM, OD (ONCE DAILY) (CAPSULE MOLLE), (SOFT CAPSULE), (IN THE EVENING)
     Route: 048
     Dates: start: 20240625
  2. LAMICTAL [Concomitant]
     Active Substance: LAMOTRIGINE
     Indication: Neuralgia
     Route: 065

REACTIONS (3)
  - Sleep disorder [Unknown]
  - Prescribed underdose [Unknown]
  - Off label use [Unknown]
